FAERS Safety Report 7023381-1 (Version None)
Quarter: 2010Q3

REPORT INFORMATION
  Report Type: 
  Country: None (occurrence: None)
  Receive Date: 20100930
  Receipt Date: 20100920
  Transmission Date: 20110219
  Serious: Yes (Hospitalization, Other)
  Sender: FDA-Public Use
  Company Number: US-ELI_LILLY_AND_COMPANY-US201005005909

PATIENT
  Sex: Female

DRUGS (4)
  1. FORTEO [Suspect]
     Indication: OSTEOPOROSIS
     Dosage: 20 UG, DAILY (1/D)
     Route: 058
     Dates: start: 20081001
  2. SEROQUEL [Concomitant]
     Dosage: 100 MG, EACH EVENING
  3. KLOR-CON [Concomitant]
     Dosage: 20 MEQ, DAILY (1/D)
  4. CYMBALTA [Concomitant]
     Dosage: 60 MG, DAILY (1/D)
     Dates: start: 20100401

REACTIONS (4)
  - BLOOD SODIUM DECREASED [None]
  - ELECTROLYTE IMBALANCE [None]
  - URINARY TRACT INFECTION [None]
  - WATER INTOXICATION [None]
